FAERS Safety Report 23598023 (Version 1)
Quarter: 2024Q1

REPORT INFORMATION
  Report Type: Spontaneous
  Country: US (occurrence: US)
  Receive Date: 20240305
  Receipt Date: 20240305
  Transmission Date: 20240410
  Serious: No
  Sender: FDA-Public Use
  Company Number: US-BRISTOL-MYERS SQUIBB COMPANY-2024-028492

PATIENT

DRUGS (1)
  1. KENALOG-40 [Suspect]
     Active Substance: TRIAMCINOLONE ACETONIDE
     Indication: Optic atrophy
     Dosage: DOSE : 1;     FREQ : 4 MG INTRAVITREAL ONE TIME DOSE
     Route: 031
     Dates: start: 20240213

REACTIONS (1)
  - Off label use [Unknown]
